FAERS Safety Report 16169746 (Version 1)
Quarter: 2019Q2

REPORT INFORMATION
  Report Type: Spontaneous
  Country: US (occurrence: US)
  Receive Date: 20190407
  Receipt Date: 20190407
  Transmission Date: 20190711
  Serious: Yes (Other)
  Sender: FDA-Public Use
  Company Number: None

PATIENT
  Age: 44 Year
  Sex: Female
  Weight: 61.65 kg

DRUGS (2)
  1. CENTRUM MULTIVITAMIN [Concomitant]
  2. BLISOVI 24 FE [Suspect]
     Active Substance: ETHINYL ESTRADIOL\NORETHINDRONE ACETATE
     Indication: DYSMENORRHOEA
     Dates: start: 20190303

REACTIONS (2)
  - Heart rate increased [None]
  - Uterine haemorrhage [None]

NARRATIVE: CASE EVENT DATE: 20190407
